FAERS Safety Report 7783524-9 (Version None)
Quarter: 2011Q3

REPORT INFORMATION
  Report Type: 
  Country: None (occurrence: None)
  Receive Date: 20110926
  Receipt Date: 20110913
  Transmission Date: 20111222
  Serious: Yes (Disabling)
  Sender: FDA-Public Use
  Company Number: E2B_7082238

PATIENT
  Age: 68 Year
  Sex: Male

DRUGS (2)
  1. LEVOTHYROXINE SODIUM [Suspect]
     Indication: MYXOEDEMA
     Dosage: 100 MCG (100 MCG, 1 IN 1 D), ORAL
     Route: 048
     Dates: start: 20110101
  2. TRAMADOL HCL [Concomitant]

REACTIONS (4)
  - MYALGIA [None]
  - DIZZINESS [None]
  - MALAISE [None]
  - FATIGUE [None]
